FAERS Safety Report 17355986 (Version 2)
Quarter: 2020Q2

REPORT INFORMATION
  Report Type: Spontaneous
  Country: JP (occurrence: JP)
  Receive Date: 20200131
  Receipt Date: 20200622
  Transmission Date: 20200713
  Serious: Yes (Death, Hospitalization, Other)
  Sender: FDA-Public Use
  Company Number: JP-ELI_LILLY_AND_COMPANY-JP201912010293

PATIENT
  Age: 55 Year
  Sex: Male

DRUGS (1)
  1. CYRAMZA [Suspect]
     Active Substance: RAMUCIRUMAB
     Indication: HEPATOCELLULAR CARCINOMA
     Dosage: 8 MG/KG, CYCLICAL
     Route: 041
     Dates: start: 20191111, end: 20191111

REACTIONS (3)
  - Tumour lysis syndrome [Recovered/Resolved]
  - Pneumonia aspiration [Fatal]
  - Liver disorder [Recovering/Resolving]

NARRATIVE: CASE EVENT DATE: 20191114
